FAERS Safety Report 9457675 (Version 1)
Quarter: 2013Q3

REPORT INFORMATION
  Report Type: Spontaneous
  Country: US (occurrence: US)
  Receive Date: 20130814
  Receipt Date: 20130814
  Transmission Date: 20140515
  Serious: Yes (Hospitalization)
  Sender: FDA-Public Use
  Company Number: US-BAYER-2013-095806

PATIENT
  Age: 27 Year
  Sex: Female
  Weight: 124 kg

DRUGS (3)
  1. YASMIN [Suspect]
  2. MERIDIA [Concomitant]
     Dosage: 10 MG, UNK
  3. MERIDIA [Concomitant]
     Dosage: 15 MG, UNK

REACTIONS (3)
  - Pulmonary embolism [Recovering/Resolving]
  - Deep vein thrombosis [None]
  - Thrombophlebitis superficial [None]
